FAERS Safety Report 7132071-6 (Version None)
Quarter: 2010Q4

REPORT INFORMATION
  Report Type: 
  Country: None (occurrence: None)
  Receive Date: 20101202
  Receipt Date: 20101122
  Transmission Date: 20110411
  Serious: Yes (Other)
  Sender: FDA-Public Use
  Company Number: PHHY2010CA76638

PATIENT
  Sex: Female

DRUGS (8)
  1. RASILEZ [Suspect]
     Indication: HYPERTENSION
     Dosage: 150 MG DAILY
     Route: 048
     Dates: start: 20100920
  2. SIMVASTATIN [Concomitant]
     Dosage: 40 MG PER DAY
     Route: 048
  3. PANTOLOC [Concomitant]
     Dosage: 40 MG PER DAY
     Route: 048
  4. METFORMIN [Concomitant]
     Dosage: 850 MG, BID
     Route: 048
  5. HYDROCHLOROTHIAZIDE [Concomitant]
     Dosage: 25 MG PER DAY
     Route: 048
  6. ALLOPURINOL [Concomitant]
     Dosage: 200 MG PER DAY
     Route: 048
  7. ATENOLOL [Concomitant]
     Dosage: 150 MG PER DAY
     Route: 048
  8. SYNTHROID [Concomitant]
     Dosage: 0.137 MG PER DAY
     Route: 048

REACTIONS (1)
  - STOMATITIS [None]
